FAERS Safety Report 8630544 (Version 3)
Quarter: 2013Q4

REPORT INFORMATION
  Report Type: Spontaneous
  Country: US (occurrence: US)
  Receive Date: 20120622
  Receipt Date: 20131015
  Transmission Date: 20140711
  Serious: Yes (Disabling, Other)
  Sender: FDA-Public Use
  Company Number: US-ASTRAZENECA-2012SE36230

PATIENT
  Age: 57 Year
  Sex: Female
  Weight: 56.7 kg

DRUGS (29)
  1. NEXIUM [Suspect]
     Indication: DYSPEPSIA
     Dosage: ONE A DAY
     Route: 048
     Dates: start: 2000, end: 2009
  2. NEXIUM [Suspect]
     Indication: GASTROOESOPHAGEAL REFLUX DISEASE
     Dosage: ONE A DAY
     Route: 048
     Dates: start: 2000, end: 2009
  3. NEXIUM [Suspect]
     Indication: DYSPEPSIA
     Route: 048
     Dates: start: 2001, end: 2008
  4. NEXIUM [Suspect]
     Indication: GASTROOESOPHAGEAL REFLUX DISEASE
     Route: 048
     Dates: start: 2001, end: 2008
  5. NEXIUM [Suspect]
     Indication: DYSPEPSIA
     Route: 048
     Dates: start: 2003, end: 2010
  6. NEXIUM [Suspect]
     Indication: GASTROOESOPHAGEAL REFLUX DISEASE
     Route: 048
     Dates: start: 2003, end: 2010
  7. NEXIUM [Suspect]
     Indication: DYSPEPSIA
     Route: 048
     Dates: start: 20110101
  8. NEXIUM [Suspect]
     Indication: GASTROOESOPHAGEAL REFLUX DISEASE
     Route: 048
     Dates: start: 20110101
  9. OMEPRAZOLE [Suspect]
     Indication: GASTROOESOPHAGEAL REFLUX DISEASE
     Route: 048
  10. OMEPRAZOLE [Suspect]
     Indication: GASTROOESOPHAGEAL REFLUX DISEASE
     Route: 048
     Dates: start: 20121119, end: 20130107
  11. PREMARIN [Concomitant]
     Dates: start: 20110210, end: 20120116
  12. PREMARIN [Concomitant]
  13. FLUTICASONE [Concomitant]
     Dates: start: 20110101
  14. TRILIPIX [Concomitant]
     Dates: start: 20110101
  15. HYDROCO/APAP [Concomitant]
     Dosage: 7.5/500 MG
     Dates: start: 20110113
  16. HYDROCHLOROT [Concomitant]
     Route: 048
     Dates: start: 20110224, end: 20110623
  17. TUMS OTC [Concomitant]
     Dates: start: 2001
  18. ROLAIDS OTC [Concomitant]
     Dates: start: 2001
  19. NAPROXEN [Concomitant]
     Dates: start: 2006
  20. LYRICA [Concomitant]
     Indication: PAIN
     Dates: end: 20120216
  21. LORTAB [Concomitant]
     Indication: PAIN
  22. VALACICLOVIR [Concomitant]
     Indication: HERPES VIRUS INFECTION
     Route: 048
     Dates: start: 20110513, end: 20120416
  23. IBUPROFEN [Concomitant]
     Indication: MUSCLE RELAXANT THERAPY
  24. FISH OIL [Concomitant]
  25. TRILPIX [Concomitant]
     Route: 048
     Dates: start: 20101230, end: 20111013
  26. VALIUM [Concomitant]
     Route: 048
     Dates: start: 20101230
  27. CYMBALTA [Concomitant]
     Route: 048
     Dates: start: 20101230, end: 20110613
  28. HYDROXYZINE [Concomitant]
     Route: 048
     Dates: start: 20110614, end: 20110812
  29. MELOXICAM [Concomitant]
     Route: 048
     Dates: start: 20121106, end: 20130305

REACTIONS (19)
  - Foot fracture [Unknown]
  - Fibromyalgia [Unknown]
  - Intervertebral disc degeneration [Unknown]
  - Arthritis [Unknown]
  - Spinal cord compression [Unknown]
  - Osteoporosis [Unknown]
  - Soft tissue injury [Unknown]
  - Multiple fractures [Unknown]
  - Bone loss [Unknown]
  - Ligament rupture [Unknown]
  - Gait disturbance [Unknown]
  - Exercise tolerance decreased [Unknown]
  - Rheumatoid arthritis [Unknown]
  - Osteoarthritis [Unknown]
  - Vertebral foraminal stenosis [Unknown]
  - Intervertebral disc protrusion [Unknown]
  - Spinal osteoarthritis [Unknown]
  - Myalgia [Unknown]
  - Depression [Unknown]
